FAERS Safety Report 8532988-1 (Version None)
Quarter: 2012Q3

REPORT INFORMATION
  Report Type: 
  Country: None (occurrence: None)
  Receive Date: 20120724
  Receipt Date: 20120713
  Transmission Date: 20120928
  Serious: Yes (Hospitalization)
  Sender: FDA-Public Use
  Company Number: IT-NOVOPROD-351175

PATIENT
  Age: 71 Year
  Sex: Female

DRUGS (7)
  1. OMEPRAZOLE [Concomitant]
     Dosage: 1 TAB, QD
     Route: 048
  2. LEVOTHYROXINE SODIUM [Concomitant]
  3. OLMESARTAN MEDOXOMIL [Concomitant]
     Dosage: 1 TAB, QD
     Route: 048
  4. SIMVASTATIN [Concomitant]
     Dosage: 1 TAB, QD
     Route: 048
  5. ASPIRIN [Concomitant]
     Dosage: 1 TAB, QD
     Route: 048
  6. NOVOMIX 30 FLEXPEN [Suspect]
     Indication: DIABETES MELLITUS
     Dosage: 12 U, QD
     Route: 058
     Dates: start: 20120101
  7. METFORMINA                         /00082701/ [Concomitant]
     Dosage: 1 TAB, QD
     Route: 048
     Dates: start: 20120101

REACTIONS (3)
  - HYPERHIDROSIS [None]
  - HYPOGLYCAEMIA [None]
  - SOPOR [None]
